FAERS Safety Report 17742604 (Version 1)
Quarter: 2020Q2

REPORT INFORMATION
  Report Type: Spontaneous
  Country: CN (occurrence: CN)
  Receive Date: 20200504
  Receipt Date: 20200504
  Transmission Date: 20200714
  Serious: Yes (Hospitalization, Other)
  Sender: FDA-Public Use
  Company Number: CN-GLAXOSMITHKLINE-CN2020APC069447

PATIENT
  Age: 30 Year
  Sex: Female

DRUGS (1)
  1. ACICLOVIR [Suspect]
     Active Substance: ACYCLOVIR
     Indication: BLISTER
     Dosage: UNK
     Dates: start: 201811

REACTIONS (3)
  - Urinary retention [Unknown]
  - Dysuria [Unknown]
  - Incontinence [Unknown]

NARRATIVE: CASE EVENT DATE: 201811
